FAERS Safety Report 23842480 (Version 1)
Quarter: 2024Q2

REPORT INFORMATION
  Report Type: Spontaneous
  Country: US (occurrence: US)
  Receive Date: 20240510
  Receipt Date: 20240510
  Transmission Date: 20240715
  Serious: Yes (Hospitalization)
  Sender: FDA-Public Use
  Company Number: US-TEVA-VS-3193883

PATIENT

DRUGS (1)
  1. AMOXICILLIN [Suspect]
     Active Substance: AMOXICILLIN
     Indication: Product used for unknown indication
     Route: 065
     Dates: end: 202301

REACTIONS (11)
  - Syncope [Unknown]
  - Skin burning sensation [Unknown]
  - Erythema [Unknown]
  - Urticaria [Unknown]
  - Dyspnoea [Unknown]
  - Asthenia [Unknown]
  - Dizziness [Unknown]
  - Near death experience [Unknown]
  - Drug hypersensitivity [Unknown]
  - Product quality issue [Unknown]
  - Feeling hot [Unknown]

NARRATIVE: CASE EVENT DATE: 20230101
